FAERS Safety Report 21253256 (Version 31)
Quarter: 2025Q3

REPORT INFORMATION
  Report Type: Report from Study
  Country: US (occurrence: US)
  Receive Date: 20220825
  Receipt Date: 20250916
  Transmission Date: 20251020
  Serious: Yes (Hospitalization, Other)
  Sender: TAKEDA
  Company Number: US-TAKEDA-US201936141

PATIENT
  Age: 75 Year
  Sex: Female
  Weight: 79 kg

DRUGS (21)
  1. HUMAN IMMUNOGLOBULIN G [Suspect]
     Active Substance: HUMAN IMMUNOGLOBULIN G
     Indication: Primary immunodeficiency syndrome
     Dosage: 5 GRAM, 1/WEEK
  2. HUMAN IMMUNOGLOBULIN G [Suspect]
     Active Substance: HUMAN IMMUNOGLOBULIN G
     Indication: Selective IgM immunodeficiency
     Dosage: 5 GRAM, Q2WEEKS
  3. HUMAN IMMUNOGLOBULIN G [Suspect]
     Active Substance: HUMAN IMMUNOGLOBULIN G
     Indication: Immunodeficiency common variable
  4. PLAVIX [Suspect]
     Active Substance: CLOPIDOGREL BISULFATE
     Indication: Product used for unknown indication
  5. DIPHENHYDRAMINE [Concomitant]
     Active Substance: DIPHENHYDRAMINE
  6. EPINEPHRINE [Concomitant]
     Active Substance: EPINEPHRINE
  7. WELLBUTRIN XL [Concomitant]
     Active Substance: BUPROPION HYDROCHLORIDE
  8. CRESTOR [Concomitant]
     Active Substance: ROSUVASTATIN CALCIUM
  9. LEVOTHYROXINE SODIUM [Concomitant]
     Active Substance: LEVOTHYROXINE SODIUM
  10. CELEBREX [Concomitant]
     Active Substance: CELECOXIB
  11. ACETAMINOPHEN [Concomitant]
     Active Substance: ACETAMINOPHEN
  12. NORTRIPTYLINE HYDROCHLORIDE [Concomitant]
     Active Substance: NORTRIPTYLINE HYDROCHLORIDE
  13. BUTALBITAL, ACETAMINOPHEN, AND CAFFEINE [Concomitant]
     Active Substance: ACETAMINOPHEN\BUTALBITAL\CAFFEINE
  14. TRAZODONE HCL [Concomitant]
     Active Substance: TRAZODONE HYDROCHLORIDE
  15. METOPROLOL [Concomitant]
     Active Substance: METOPROLOL
  16. TOPAMAX [Concomitant]
     Active Substance: TOPIRAMATE
  17. ADDERALL [Concomitant]
     Active Substance: AMPHETAMINE ASPARTATE\AMPHETAMINE SULFATE\DEXTROAMPHETAMINE SACCHARATE\DEXTROAMPHETAMINE SULFATE
  18. ATENOLOL [Concomitant]
     Active Substance: ATENOLOL
  19. VOLTAREN ARTHRITIS PAIN [Concomitant]
     Active Substance: DICLOFENAC SODIUM
  20. Lmx [Concomitant]
  21. DIPHENHYDRAMINE HYDROCHLORIDE [Concomitant]
     Active Substance: DIPHENHYDRAMINE HYDROCHLORIDE

REACTIONS (29)
  - Urinary tract infection [Unknown]
  - Post procedural complication [Unknown]
  - Haemorrhage [Unknown]
  - Deafness unilateral [Unknown]
  - Oral infection [Unknown]
  - Pain [Unknown]
  - Nausea [Unknown]
  - Rubber sensitivity [Unknown]
  - Hypovitaminosis [Unknown]
  - Multimorbidity [Unknown]
  - COVID-19 [Unknown]
  - Viral infection [Unknown]
  - Illness [Unknown]
  - Ehlers-Danlos syndrome [Unknown]
  - Scoliosis [Unknown]
  - Arthropathy [Unknown]
  - Memory impairment [Unknown]
  - Fungal infection [Unknown]
  - Limb discomfort [Not Recovered/Not Resolved]
  - Product dose omission issue [Unknown]
  - Multiple allergies [Unknown]
  - Gastrointestinal disorder [Unknown]
  - Pharyngitis [Unknown]
  - Influenza [Unknown]
  - Pain in extremity [Unknown]
  - Burning sensation [Unknown]
  - Migraine [Unknown]
  - Dizziness [Unknown]
  - Hypersensitivity [Recovered/Resolved]

NARRATIVE: CASE EVENT DATE: 20240328
